FAERS Safety Report 17486761 (Version 5)
Quarter: 2020Q2

REPORT INFORMATION
  Report Type: Spontaneous
  Country: US (occurrence: US)
  Receive Date: 20200303
  Receipt Date: 20200602
  Transmission Date: 20200713
  Serious: Yes (Life-Threatening, Hospitalization, Other)
  Sender: FDA-Public Use
  Company Number: US-ADVANZ PHARMA-202002001091

PATIENT

DRUGS (12)
  1. HYDROXYCHLOROQUINE [Suspect]
     Active Substance: HYDROXYCHLOROQUINE
     Indication: IMMUNOSUPPRESSANT DRUG THERAPY
     Dosage: 100 MG, QD, PLAQUENIL TABLET
     Route: 048
     Dates: start: 20180906
  2. ZYRTEC [Concomitant]
     Active Substance: CETIRIZINE HYDROCHLORIDE
     Dosage: UNK
  3. PREDNISONE. [Suspect]
     Active Substance: PREDNISONE
     Dosage: 30 MG, QD
     Route: 065
  4. PREDNISONE. [Suspect]
     Active Substance: PREDNISONE
     Dosage: 20 MG, QD, TAPERING DOSE
     Route: 065
  5. SHINGRIX [Suspect]
     Active Substance: RECOMBINANT VARICELLA ZOSTER VIRUS (VZV) GLYCOPROTEIN E
     Indication: IMMUNISATION
     Dosage: UNK,TO HER RIGHT DELTOID
     Route: 065
     Dates: start: 20190308
  6. ORTHO-NOVUM [Concomitant]
     Active Substance: ETHINYL ESTRADIOL\NORETHINDRONE
     Dosage: UNK
  7. CALCIUM CARBONATE. [Concomitant]
     Active Substance: CALCIUM CARBONATE
     Dosage: UNK
  8. LEVOTHYROXINE. [Concomitant]
     Active Substance: LEVOTHYROXINE
     Dosage: UNK
  9. PREDNISONE. [Suspect]
     Active Substance: PREDNISONE
     Indication: IMMUNOSUPPRESSANT DRUG THERAPY
     Dosage: 40 MG, QD
     Route: 065
     Dates: start: 20190131
  10. PREDNISONE. [Suspect]
     Active Substance: PREDNISONE
     Dosage: 35 MG, QD
     Route: 065
  11. IMURAN [Suspect]
     Active Substance: AZATHIOPRINE
     Indication: IMMUNOSUPPRESSANT DRUG THERAPY
     Dosage: 50 MG, QD
     Route: 048
     Dates: start: 20190131
  12. PREDNISONE. [Suspect]
     Active Substance: PREDNISONE
     Dosage: 25 MG, QD
     Route: 065

REACTIONS (10)
  - Dermatitis [Recovering/Resolving]
  - Varicella zoster virus infection [Recovering/Resolving]
  - Pain [Recovering/Resolving]
  - Acantholysis [Recovering/Resolving]
  - Inflammation [Recovering/Resolving]
  - Blister [Recovering/Resolving]
  - Herpes zoster [Recovering/Resolving]
  - Pruritus [Recovering/Resolving]
  - Macule [Recovering/Resolving]
  - Skin plaque [Recovering/Resolving]

NARRATIVE: CASE EVENT DATE: 20190310
